FAERS Safety Report 22083916 (Version 1)
Quarter: 2023Q1

REPORT INFORMATION
  Report Type: Report from Study
  Country: MX (occurrence: MX)
  Receive Date: 20230310
  Receipt Date: 20230310
  Transmission Date: 20230417
  Serious: Yes (Other)
  Sender: FDA-Public Use
  Company Number: MX-002147023-NVSC2023MX052594

PATIENT
  Age: 58 Year
  Sex: Female
  Weight: 100 kg

DRUGS (9)
  1. EXFORGE HCT [Suspect]
     Active Substance: AMLODIPINE BESYLATE\HYDROCHLOROTHIAZIDE\VALSARTAN
     Indication: Hypertension
     Dosage: 2 DOSAGE FORM, QD  (5/160/12.5 MG)
     Route: 048
     Dates: start: 2020, end: 2021
  2. EXFORGE HCT [Suspect]
     Active Substance: AMLODIPINE BESYLATE\HYDROCHLOROTHIAZIDE\VALSARTAN
     Dosage: 1 DOSAGE FORM, QD (10/320/250 MG)
     Route: 048
  3. ALPRAZOLAM [Concomitant]
     Active Substance: ALPRAZOLAM
     Indication: Anxiety
     Dosage: 2.00 MG, QD (1 OF 2.0MG )
     Route: 048
     Dates: start: 2019
  4. ISOPHANE INSULIN [Concomitant]
     Active Substance: INSULIN NOS
     Indication: Diabetes mellitus
     Dosage: 10 UNITS OF 100UL/ML, QD
     Route: 030
     Dates: start: 2019
  5. INSULIN HUMAN [Concomitant]
     Active Substance: INSULIN HUMAN
     Indication: Diabetes mellitus
     Dosage: 20 UNITS OF  100UL/ML, QD
     Route: 030
     Dates: start: 2019
  6. METFORMIN [Concomitant]
     Active Substance: METFORMIN HYDROCHLORIDE
     Indication: Diabetes mellitus
     Dosage: 3 OF 850 MG EVERY 8 HOURS
     Route: 048
     Dates: start: 2017
  7. GLYBURIDE [Concomitant]
     Active Substance: GLYBURIDE
     Indication: Diabetes mellitus
     Dosage: 3 (DOSAGE NOT MENTIONED) EVERY 8 HOURS
     Route: 048
     Dates: start: 2017, end: 2019
  8. CITALOPRAM [Concomitant]
     Active Substance: CITALOPRAM HYDROBROMIDE
     Indication: Anxiety
     Dosage: 1 OF 20 MG, QD
     Route: 048
  9. METFORMIN [Concomitant]
     Active Substance: METFORMIN HYDROCHLORIDE
     Indication: Diabetes mellitus
     Dosage: 1 G, QD
     Route: 048

REACTIONS (6)
  - Diabetic complication [Unknown]
  - Pneumonia [Recovered/Resolved with Sequelae]
  - Cough [Not Recovered/Not Resolved]
  - Urinary tract infection [Unknown]
  - Overweight [Unknown]
  - Blood pressure inadequately controlled [Unknown]

NARRATIVE: CASE EVENT DATE: 20211201
